FAERS Safety Report 4347759-X (Version None)
Quarter: 2004Q2

REPORT INFORMATION
  Report Type: 
  Country: None (occurrence: None)
  Receive Date: 20040427
  Receipt Date: 20040308
  Transmission Date: 20050107
  Serious: Yes (Hospitalization)
  Sender: FDA-Public Use
  Company Number: 200411770US

PATIENT
  Age: 88 Year
  Sex: Male
  Weight: 97.7 kg

DRUGS (8)
  1. LASIX [Suspect]
     Dosage: DOSE: UNK
  2. TYLENOL (CAPLET) [Suspect]
     Indication: ARTHRALGIA
     Dosage: DOSE: 650 (4 TO 8 A DAY) PRN
     Route: 048
  3. TYLENOL W/ CODEINE NO. 3 [Concomitant]
     Dosage: DOSE: UNK
     Route: 048
  4. EXCEDRIN (MIGRAINE) [Concomitant]
     Dosage: DOSE: UNK
     Route: 048
  5. ROBITUSSIN [Concomitant]
     Dosage: DOSE: UNK
     Route: 048
  6. K-DUR 10 [Concomitant]
     Dosage: DOSE: UNK
     Route: 048
  7. SINGULAIR [Concomitant]
     Dosage: DOSE: UNK
     Route: 048
  8. OXYGEN [Concomitant]
     Dosage: DOSE: UNK

REACTIONS (8)
  - DELIRIUM [None]
  - DISORIENTATION [None]
  - ELECTROLYTE IMBALANCE [None]
  - EYE REDNESS [None]
  - EYE SWELLING [None]
  - MEDICATION ERROR [None]
  - OVERDOSE [None]
  - PNEUMONIA [None]
